FAERS Safety Report 6140053-6 (Version None)
Quarter: 2009Q2

REPORT INFORMATION
  Report Type: 
  Country: None (occurrence: None)
  Receive Date: 20090401
  Receipt Date: 20090401
  Transmission Date: 20091009
  Serious: Yes (Hospitalization, Other)
  Sender: FDA-Public Use
  Company Number: PHHO2004BE14668

PATIENT
  Sex: Female
  Weight: 64 kg

DRUGS (3)
  1. CGS 20267 T30748+ [Suspect]
     Indication: BREAST CANCER
     Dosage: 2.5 MG, QD
     Route: 048
     Dates: start: 20010712
  2. PRAVASTATIN SODIUM [Concomitant]
     Indication: HYPERCHOLESTEROLAEMIA
  3. ISOTEN [Concomitant]
     Indication: HYPERTENSION

REACTIONS (3)
  - HYPERTROPHIC CARDIOMYOPATHY [None]
  - MYOCARDIAL ISCHAEMIA [None]
  - STENT PLACEMENT [None]
